FAERS Safety Report 4474015-1 (Version None)
Quarter: 2004Q4

REPORT INFORMATION
  Report Type: 
  Country: None (occurrence: None)
  Receive Date: 20041008
  Receipt Date: 20040929
  Transmission Date: 20050328
  Serious: No
  Sender: FDA-Public Use
  Company Number: 04H-163-0275291-00

PATIENT
  Age: 80 Year
  Sex: Female
  Weight: 83.5 kg

DRUGS (4)
  1. DILTIAZEM [Suspect]
     Indication: ATRIAL FIBRILLATION
     Dosage: 5 MILLIGRAM/MILLIGRAM/MILLILITERS, ONCE, INTRAVENOUS BOLUS
     Route: 040
     Dates: start: 20040927, end: 20040927
  2. DILTIAZEM HCL 100MG INJECTION, ADD-VANTAGE VIAL (DILTIAZEM HYDROCHLORI [Suspect]
     Indication: ATRIAL FIBRILLATION
     Dosage: 10 MILLIGRAM/MILLILITERS, 30 MINUTES CONTINUOUS INFUSION, INTRAVENOUS DRIP
     Route: 041
     Dates: start: 20040927, end: 20040927
  3. DIGOXIN [Concomitant]
  4. RITAXIN [Concomitant]

REACTIONS (6)
  - DYSPHAGIA [None]
  - HYPOAESTHESIA [None]
  - INFUSION RELATED REACTION [None]
  - PAIN IN EXTREMITY [None]
  - PARAESTHESIA [None]
  - THROAT TIGHTNESS [None]
